FAERS Safety Report 19274071 (Version 9)
Quarter: 2022Q1

REPORT INFORMATION
  Report Type: Spontaneous
  Country: US (occurrence: US)
  Receive Date: 20210519
  Receipt Date: 20220121
  Transmission Date: 20220424
  Serious: No
  Sender: FDA-Public Use
  Company Number: US-GLAXOSMITHKLINE-US2021AMR105035

PATIENT
  Sex: Female

DRUGS (5)
  1. ZEJULA [Suspect]
     Active Substance: NIRAPARIB
     Indication: Ovarian cancer
     Dosage: 100 MG, QD
     Dates: start: 202104
  2. ZEJULA [Suspect]
     Active Substance: NIRAPARIB
     Dosage: 200 MG, QD
     Dates: start: 20210505
  3. ZEJULA [Suspect]
     Active Substance: NIRAPARIB
     Dosage: UNK , (100 MG AND 200 MG EVERY OTHER DAY)
  4. ZEJULA [Suspect]
     Active Substance: NIRAPARIB
     Dosage: UNK, (TAKE 1 CAPSULE BY MOUTH DAILY AND ALTERNATING WITH 2 CAPSULES DAILY)
  5. ZEJULA [Suspect]
     Active Substance: NIRAPARIB
     Dosage: UNK (100MG OR 200MG ALTERNATING QD)

REACTIONS (7)
  - Insomnia [Not Recovered/Not Resolved]
  - Arthralgia [Not Recovered/Not Resolved]
  - Carbohydrate antigen 125 increased [Unknown]
  - Off label use [Unknown]
  - Incorrect dose administered [Unknown]
  - Product dose omission issue [Unknown]
  - Inappropriate schedule of product administration [Unknown]
